FAERS Safety Report 5556087-6 (Version None)
Quarter: 2007Q4

REPORT INFORMATION
  Report Type: 
  Country: None (occurrence: None)
  Receive Date: 20071213
  Receipt Date: 20071205
  Transmission Date: 20080405
  Serious: Yes (Other)
  Sender: FDA-Public Use
  Company Number: PHBS2007BR20484

PATIENT
  Age: 59 Year
  Sex: Female
  Weight: 155 kg

DRUGS (2)
  1. ELIDEL [Suspect]
     Indication: SEBORRHOEIC DERMATITIS
     Dosage: UNK, UNK
     Route: 061
     Dates: start: 20050101
  2. DEXAMETHASONE TAB [Concomitant]
     Indication: SEBORRHOEIC DERMATITIS
     Dosage: UNK, QD
     Route: 061
     Dates: start: 20050101

REACTIONS (4)
  - CEREBROVASCULAR ACCIDENT [None]
  - DERMATITIS [None]
  - FACIAL PALSY [None]
  - ONYCHOMADESIS [None]
